FAERS Safety Report 18340049 (Version 1)
Quarter: 2020Q4

REPORT INFORMATION
  Report Type: Spontaneous
  Country: MY (occurrence: MY)
  Receive Date: 20201002
  Receipt Date: 20201002
  Transmission Date: 20210113
  Serious: Yes (Death, Other)
  Sender: FDA-Public Use
  Company Number: MY-SA-2020SA271043

PATIENT

DRUGS (1)
  1. JEVTANA [Suspect]
     Active Substance: CABAZITAXEL
     Indication: PROSTATE CANCER METASTATIC
     Dosage: 60 MG, QCY
     Route: 042

REACTIONS (1)
  - Prostate cancer [Fatal]

NARRATIVE: CASE EVENT DATE: 20200930
